FAERS Safety Report 15599778 (Version 1)
Quarter: 2018Q4

REPORT INFORMATION
  Report Type: Spontaneous
  Country: AT (occurrence: AT)
  Receive Date: 20181108
  Receipt Date: 20181108
  Transmission Date: 20190205
  Serious: Yes (Other)
  Sender: FDA-Public Use
  Company Number: AT-009507513-1811AUT002156

PATIENT
  Age: 37 Year
  Sex: Male

DRUGS (4)
  1. KEYTRUDA [Suspect]
     Active Substance: PEMBROLIZUMAB
     Indication: CENTRAL NERVOUS SYSTEM MELANOMA
     Dosage: 2 MILLIGRAM/KILOGRAM (BODY WEIGHT), EVERY 3 WEEKS
  2. THERAPEUTIC RADIOPHARMACEUTICAL (UNSPECIFIED) [Concomitant]
     Active Substance: UNSPECIFIED INGREDIENT
     Dosage: TOTAL DOSE 27GY / 3GY SINGLE DOSE.
  3. THERAPEUTIC RADIOPHARMACEUTICAL (UNSPECIFIED) [Concomitant]
     Active Substance: UNSPECIFIED INGREDIENT
     Indication: RADIOTHERAPY TO BONE
     Dosage: TOTAL DOSE 39GY / 3GY SINGLE DOSE.
  4. KEYTRUDA [Suspect]
     Active Substance: PEMBROLIZUMAB
     Indication: METASTATIC MALIGNANT MELANOMA

REACTIONS (3)
  - Lichenification [Unknown]
  - Cancer pain [Unknown]
  - Osteolysis [Unknown]

NARRATIVE: CASE EVENT DATE: 201804
